FAERS Safety Report 21632375 (Version 1)
Quarter: 2022Q4

REPORT INFORMATION
  Report Type: Spontaneous
  Country: US (occurrence: None)
  Receive Date: 20221122
  Receipt Date: 20221122
  Transmission Date: 20230112
  Serious: Yes (unspecified)
  Sender: FDA-Public Use
  Company Number: None

PATIENT
  Age: 16 Year
  Sex: Female

DRUGS (4)
  1. DRONABINOL [Suspect]
     Active Substance: DRONABINOL
     Dosage: OTHER FREQUENCY :  ONCE A MONTH;?
     Route: 055
  2. VENLAFAXINE [Concomitant]
     Active Substance: VENLAFAXINE HYDROCHLORIDE
  3. MIRTAZAPINE [Concomitant]
     Active Substance: MIRTAZAPINE
  4. SAM-E VITAMIN [Concomitant]

REACTIONS (3)
  - Dehydration [None]
  - Syncope [None]
  - Seizure [None]

NARRATIVE: CASE EVENT DATE: 20221014
